FAERS Safety Report 17258208 (Version 1)
Quarter: 2019Q4

REPORT INFORMATION
  Report Type: Spontaneous
  Country: US (occurrence: US)
  Receive Date: 20191217
  Receipt Date: 20191217
  Transmission Date: 20200122
  Serious: Yes (Hospitalization)
  Sender: FDA-Public Use
  Company Number: None

PATIENT
  Age: 66 Year
  Sex: Female
  Weight: 77.9 kg

DRUGS (2)
  1. PEMBROLIZUMAB 200MG [Suspect]
     Active Substance: PEMBROLIZUMAB
     Indication: PANCREATIC DISORDER
     Dosage: ?          OTHER FREQUENCY:WEEKLY X2 THEN;?
     Route: 042
     Dates: start: 20190221, end: 20191107
  2. DEFACTINIB 200MG [Suspect]
     Active Substance: DEFACTINIB
     Indication: PANCREATIC DISORDER
     Route: 048
     Dates: start: 20190221, end: 20191125

REACTIONS (2)
  - Haemolytic anaemia [None]
  - Cardiac failure congestive [None]

NARRATIVE: CASE EVENT DATE: 20191126
